FAERS Safety Report 9785882 (Version 2)
Quarter: 2013Q4

REPORT INFORMATION
  Report Type: Spontaneous
  Country: IT (occurrence: None)
  Receive Date: 20131223
  Receipt Date: 20131231
  Transmission Date: 20140711
  Serious: Yes (Hospitalization)
  Sender: FDA-Public Use
  Company Number: AUR-APL-2013-10669

PATIENT
  Age: 5 Year
  Sex: Female
  Weight: 17 kg

DRUGS (1)
  1. CITALOPRAM (CITALOPRAM) [Suspect]
     Indication: PRODUCT USED FOR UNKNOWN INDICATION
     Dosage: 10 GTT, TOTAL
     Route: 048
     Dates: start: 20130204, end: 20130204

REACTIONS (2)
  - Agitation [None]
  - Wrong drug administered [None]
